FAERS Safety Report 22670024 (Version 3)
Quarter: 2024Q3

REPORT INFORMATION
  Report Type: Spontaneous
  Country: US (occurrence: US)
  Receive Date: 20230704
  Receipt Date: 20240729
  Transmission Date: 20241016
  Serious: Yes (Other)
  Sender: PFIZER
  Company Number: US-PFIZER INC-202300235095

PATIENT
  Age: 21 Year
  Sex: Male
  Weight: 61.23 kg

DRUGS (1)
  1. OXBRYTA [Suspect]
     Active Substance: VOXELOTOR
     Indication: Sickle cell disease
     Dosage: 1500 MG, DAILY (500 MG, 3 TABLETS BY MOUTH DAILY)
     Route: 048
     Dates: end: 202405

REACTIONS (3)
  - Jaw operation [Unknown]
  - Weight increased [Unknown]
  - Vomiting [Unknown]
